FAERS Safety Report 25468241 (Version 1)
Quarter: 2025Q2

REPORT INFORMATION
  Report Type: Spontaneous
  Country: US (occurrence: US)
  Receive Date: 20250623
  Receipt Date: 20250623
  Transmission Date: 20250717
  Serious: No
  Sender: TORRENT PHARMA INC.
  Company Number: US-TORRENT-00014367

PATIENT
  Age: 60 Year
  Sex: Male

DRUGS (1)
  1. DICHLORPHENAMIDE [Suspect]
     Active Substance: DICHLORPHENAMIDE
     Indication: Paralysis
     Route: 065

REACTIONS (2)
  - Visual impairment [Unknown]
  - Fatigue [Unknown]
